FAERS Safety Report 13719109 (Version 2)
Quarter: 2017Q3

REPORT INFORMATION
  Report Type: Spontaneous
  Country: JP (occurrence: JP)
  Receive Date: 20170705
  Receipt Date: 20170901
  Transmission Date: 20171127
  Serious: Yes (Other)
  Sender: FDA-Public Use
  Company Number: JP-ELI_LILLY_AND_COMPANY-JP201707000456

PATIENT
  Age: 83 Year
  Sex: Male
  Weight: 52 kg

DRUGS (7)
  1. ERBITUX [Suspect]
     Active Substance: CETUXIMAB
     Dosage: 370 MG, UNKNOWN
     Route: 041
     Dates: start: 20170526
  2. ERBITUX [Suspect]
     Active Substance: CETUXIMAB
     Dosage: 360 MG, WEEKLY (1/W)
     Route: 041
     Dates: start: 20170421
  3. ERBITUX [Suspect]
     Active Substance: CETUXIMAB
     Indication: LARYNGEAL CANCER
     Dosage: UNK UNK, UNKNOWN
     Route: 041
     Dates: start: 20170315
  4. ERBITUX [Suspect]
     Active Substance: CETUXIMAB
     Dosage: 370 MG, UNKNOWN
     Route: 041
     Dates: start: 20170327
  5. CARBOPLATIN. [Concomitant]
     Active Substance: CARBOPLATIN
     Indication: LARYNGEAL CANCER
     Dosage: 200MG/20ML PLUS 5 PERCENT TZ 250ML, UNKNOWN
     Route: 041
     Dates: start: 20170327
  6. ERBITUX [Suspect]
     Active Substance: CETUXIMAB
     Dosage: 360 MG, WEEKLY (1/W)
     Route: 041
     Dates: start: 20170407
  7. 5-FU                               /00098801/ [Concomitant]
     Active Substance: FLUOROURACIL
     Indication: LARYNGEAL CANCER
     Dosage: 1000MG/20ML PLUS SOLDEM 3A 500ML, UNKNOWN
     Route: 041
     Dates: start: 20170327

REACTIONS (1)
  - Rhabdomyolysis [Recovered/Resolved]

NARRATIVE: CASE EVENT DATE: 20170427
